FAERS Safety Report 6663330-9 (Version None)
Quarter: 2010Q2

REPORT INFORMATION
  Report Type: 
  Country: None (occurrence: None)
  Receive Date: 20100401
  Receipt Date: 20100322
  Transmission Date: 20101027
  Serious: Yes (Death)
  Sender: FDA-Public Use
  Company Number: CN-BAYER-201020124GPV

PATIENT
  Age: 45 Year
  Sex: Male

DRUGS (1)
  1. ASPIRIN [Suspect]
     Indication: HEADACHE
     Dosage: TOTAL DAILY DOSE: 1 G

REACTIONS (6)
  - ABDOMINAL DISCOMFORT [None]
  - ECCHYMOSIS [None]
  - HAEMATEMESIS [None]
  - HAEMOLYTIC URAEMIC SYNDROME [None]
  - MELAENA [None]
  - NAUSEA [None]
